FAERS Safety Report 23323650 (Version 1)
Quarter: 2023Q4

REPORT INFORMATION
  Report Type: Other
  Country: US (occurrence: None)
  Receive Date: 20231220
  Receipt Date: 20231220
  Transmission Date: 20240110
  Serious: Yes (Other)
  Sender: FDA-Public Use
  Company Number: US-ROCHE-3432596

PATIENT
  Age: 50 Year
  Sex: Female

DRUGS (2)
  1. RITUXIMAB [Suspect]
     Active Substance: RITUXIMAB
     Indication: Atypical mycobacterial infection
     Dosage: RITUXIMAB WAS GIVEN AT 375MG/M2 WEEKLY FOR }/= 4 DOSES AND THEN AT WIDER INTERVALS. ALL PATIENTS REC
     Route: 042
  2. INTERFERON GAMMA [Concomitant]
     Active Substance: INTERFERON GAMMA

REACTIONS (1)
  - Neutropenia [Recovered/Resolved]
